FAERS Safety Report 6423872-8 (Version None)
Quarter: 2009Q4

REPORT INFORMATION
  Report Type: 
  Country: None (occurrence: None)
  Receive Date: 20091102
  Receipt Date: 20091023
  Transmission Date: 20100525
  Serious: No
  Sender: FDA-Public Use
  Company Number: US-B.I. PHARMACEUTICALS,INC./RIDGEFIELD-2009-BP-12534BP

PATIENT
  Age: 54 Year
  Sex: Female

DRUGS (1)
  1. SPIRIVA [Suspect]
     Route: 055

REACTIONS (5)
  - COUGH [None]
  - DYSPNOEA EXERTIONAL [None]
  - HEADACHE [None]
  - THROAT IRRITATION [None]
  - WHEEZING [None]
